FAERS Safety Report 16359535 (Version 2)
Quarter: 2019Q2

REPORT INFORMATION
  Report Type: Spontaneous
  Country: JP (occurrence: JP)
  Receive Date: 20190528
  Receipt Date: 20190612
  Transmission Date: 20190711
  Serious: Yes (Hospitalization)
  Sender: FDA-Public Use
  Company Number: JP-ROCHE-2326884

PATIENT
  Age: 50 Year
  Sex: Female

DRUGS (1)
  1. BONOTEO [Suspect]
     Active Substance: MINODRONIC ACID
     Indication: OSTEOPOROSIS
     Route: 042

REACTIONS (1)
  - Atypical fracture [Unknown]
